FAERS Safety Report 21318162 (Version 1)
Quarter: 2022Q3

REPORT INFORMATION
  Report Type: Spontaneous
  Country: US (occurrence: US)
  Receive Date: 20220911
  Receipt Date: 20220911
  Transmission Date: 20221027
  Serious: No
  Sender: FDA-Public Use
  Company Number: US-SA-SAC20220826001538

PATIENT
  Sex: Female

DRUGS (1)
  1. DUPIXENT [Suspect]
     Active Substance: DUPILUMAB
     Indication: Nasal polyps
     Dosage: 300 MG, QOW
     Route: 058
     Dates: start: 20220713

REACTIONS (6)
  - Aphthous ulcer [Unknown]
  - Joint stiffness [Unknown]
  - Mobility decreased [Unknown]
  - Initial insomnia [Unknown]
  - Insomnia [Unknown]
  - Drug effective for unapproved indication [Unknown]
